FAERS Safety Report 14335948 (Version 1)
Quarter: 2017Q4

REPORT INFORMATION
  Report Type: Spontaneous
  Country: FR (occurrence: FR)
  Receive Date: 20171229
  Receipt Date: 20171229
  Transmission Date: 20180321
  Serious: Yes (Hospitalization)
  Sender: FDA-Public Use
  Company Number: FR-CIPLA LTD.-2017FR27311

PATIENT

DRUGS (2)
  1. KEPPRA [Concomitant]
     Active Substance: LEVETIRACETAM
     Indication: NEURODEVELOPMENTAL DISORDER
     Dosage: 1.2 ML/DAY
     Route: 048
     Dates: start: 20171025
  2. LAMOTRIGINE. [Suspect]
     Active Substance: LAMOTRIGINE
     Indication: NEURODEVELOPMENTAL DISORDER
     Dosage: 35 MG/DAY
     Route: 048
     Dates: start: 20171028, end: 20171111

REACTIONS (6)
  - Rash maculo-papular [Recovered/Resolved]
  - Drug level increased [Recovered/Resolved]
  - Convulsions local [Recovered/Resolved]
  - Product use issue [Recovered/Resolved]
  - Product use in unapproved indication [Recovered/Resolved]
  - Prescribed overdose [Recovered/Resolved]

NARRATIVE: CASE EVENT DATE: 20171028
